FAERS Safety Report 6761424-0 (Version None)
Quarter: 2010Q2

REPORT INFORMATION
  Report Type: 
  Country: None (occurrence: None)
  Receive Date: 20100608
  Receipt Date: 20100602
  Transmission Date: 20101027
  Serious: Yes (Death, Hospitalization)
  Sender: FDA-Public Use
  Company Number: US-ROCHE-702837

PATIENT
  Sex: Male
  Weight: 88.9 kg

DRUGS (14)
  1. BEVACIZUMAB [Suspect]
     Indication: GASTRIC CANCER
     Route: 042
     Dates: start: 20100428
  2. CAPECITABINE [Suspect]
     Indication: GASTRIC CANCER
     Dosage: DAYS 1-14, FREQUENCY 3 QAM AND 4 QPM.
     Route: 048
     Dates: start: 20100428, end: 20100510
  3. OXALIPLATIN [Suspect]
     Indication: GASTRIC CANCER
     Dosage: FORM: VIALS
     Route: 042
     Dates: start: 20100428
  4. ASPIRIN [Concomitant]
     Route: 048
  5. ATIVAN [Concomitant]
     Dosage: PRN
     Route: 048
  6. COLACE [Concomitant]
     Route: 048
  7. CRESTOR [Concomitant]
     Route: 048
  8. MEGACE [Concomitant]
     Dosage: DOSE: 65 MG/ML
     Route: 048
  9. PERCOCET [Concomitant]
     Dosage: DOSE: 5 MG -325 MG. PRN PAIN
     Route: 048
  10. PLAVIX [Concomitant]
     Route: 048
  11. PROCTOFOAM [Concomitant]
     Dosage: PR PM
     Route: 061
  12. REGLAN [Concomitant]
     Route: 048
  13. TOPROL-XL [Concomitant]
     Route: 048
  14. TRIAMCINOLONE ACETONIDE [Concomitant]
     Dosage: PRN
     Route: 061

REACTIONS (3)
  - DEATH [None]
  - DEHYDRATION [None]
  - VOMITING [None]
